FAERS Safety Report 14847283 (Version 2)
Quarter: 2018Q2

REPORT INFORMATION
  Report Type: Spontaneous
  Country: US (occurrence: US)
  Receive Date: 20180504
  Receipt Date: 20180618
  Transmission Date: 20180711
  Serious: Yes (Death)
  Sender: FDA-Public Use
  Company Number: PHEH2018US017110

PATIENT
  Sex: Male

DRUGS (10)
  1. MEKINIST [Suspect]
     Active Substance: TRAMETINIB DIMETHYL SULFOXIDE
     Indication: METASTASES TO LUNG
  2. MEKINIST [Suspect]
     Active Substance: TRAMETINIB DIMETHYL SULFOXIDE
     Indication: METASTASES TO LIVER
  3. TAFINLAR [Suspect]
     Active Substance: DABRAFENIB MESYLATE
     Indication: METASTASES TO LUNG
  4. TAFINLAR [Suspect]
     Active Substance: DABRAFENIB MESYLATE
     Indication: METASTASES TO LIVER
  5. MEKINIST [Suspect]
     Active Substance: TRAMETINIB DIMETHYL SULFOXIDE
     Indication: BRAIN NEOPLASM MALIGNANT
  6. MEKINIST [Suspect]
     Active Substance: TRAMETINIB DIMETHYL SULFOXIDE
     Indication: CHOLANGIOCARCINOMA
  7. TAFINLAR [Suspect]
     Active Substance: DABRAFENIB MESYLATE
     Indication: COLON CANCER
     Dosage: 150 MG, BID
     Route: 048
     Dates: start: 20171017
  8. TAFINLAR [Suspect]
     Active Substance: DABRAFENIB MESYLATE
     Indication: BRAIN NEOPLASM MALIGNANT
  9. MEKINIST [Suspect]
     Active Substance: TRAMETINIB DIMETHYL SULFOXIDE
     Indication: COLON CANCER
     Dosage: 2 MG, QD
     Route: 048
     Dates: start: 20171017
  10. TAFINLAR [Suspect]
     Active Substance: DABRAFENIB MESYLATE
     Indication: CHOLANGIOCARCINOMA

REACTIONS (7)
  - Metastases to liver [Fatal]
  - Metastases to lung [Fatal]
  - Product use in unapproved indication [Unknown]
  - Brain neoplasm malignant [Fatal]
  - Malignant neoplasm progression [Fatal]
  - Colon cancer [Fatal]
  - Cholangiocarcinoma [Fatal]
